FAERS Safety Report 5699410-4 (Version None)
Quarter: 2008Q2

REPORT INFORMATION
  Report Type: 
  Country: None (occurrence: None)
  Receive Date: 20080404
  Receipt Date: 20080321
  Transmission Date: 20081010
  Serious: Yes (Hospitalization)
  Sender: FDA-Public Use
  Company Number: 08-017

PATIENT
  Age: 64 Year
  Sex: Female

DRUGS (1)
  1. BUTALBITAL/ACETAMINOPHEN/CAFFEINE 50/325/40 MG TABS [Suspect]

REACTIONS (1)
  - CEREBROVASCULAR ACCIDENT [None]
